FAERS Safety Report 13891601 (Version 1)
Quarter: 2017Q3

REPORT INFORMATION
  Report Type: Spontaneous
  Country: UY (occurrence: UY)
  Receive Date: 20170822
  Receipt Date: 20170822
  Transmission Date: 20171127
  Serious: Yes (Other)
  Sender: FDA-Public Use
  Company Number: UY-TEVA-790789ISR

PATIENT
  Age: 36 Year
  Sex: Female

DRUGS (4)
  1. ZOLBEN C [Concomitant]
  2. BIOGRIP [Concomitant]
  3. CAMPOZIN [Suspect]
     Active Substance: AZITHROMYCIN
     Indication: INFLUENZA
     Dosage: 500 MILLIGRAM DAILY;
     Route: 048
     Dates: start: 20170628, end: 20170703
  4. PARACETAMOL [Concomitant]
     Active Substance: ACETAMINOPHEN

REACTIONS (3)
  - Staphylococcal infection [Not Recovered/Not Resolved]
  - Dysgeusia [Not Recovered/Not Resolved]
  - Parosmia [Not Recovered/Not Resolved]

NARRATIVE: CASE EVENT DATE: 20170628
